FAERS Safety Report 13456305 (Version 1)
Quarter: 2017Q2

REPORT INFORMATION
  Report Type: Spontaneous
  Country: IT (occurrence: IT)
  Receive Date: 20170419
  Receipt Date: 20170419
  Transmission Date: 20170830
  Serious: Yes (Life-Threatening, Hospitalization)
  Sender: FDA-Public Use
  Company Number: IT-ELI_LILLY_AND_COMPANY-IT201704005173

PATIENT
  Age: 56 Year
  Sex: Female

DRUGS (5)
  1. BRINTELLIX [Concomitant]
     Active Substance: VORTIOXETINE HYDROBROMIDE
     Dosage: 10 MG, UNKNOWN
     Route: 048
  2. OLANZAPINE. [Suspect]
     Active Substance: OLANZAPINE
     Indication: DRUG USE DISORDER
     Dosage: 35 MG, TOTAL
     Route: 048
     Dates: start: 20170202, end: 20170202
  3. DEPAKIN CHRONO                     /00228502/ [Suspect]
     Active Substance: VALPROATE SODIUM
     Indication: DRUG USE DISORDER
     Dosage: 3000 MG, TOTAL
     Route: 048
     Dates: start: 20170202, end: 20170202
  4. LAMICTAL [Suspect]
     Active Substance: LAMOTRIGINE
     Indication: DRUG USE DISORDER
     Dosage: 700 MG, TOTAL
     Route: 048
     Dates: start: 20170202, end: 20170202
  5. ZOLOFT [Concomitant]
     Active Substance: SERTRALINE HYDROCHLORIDE
     Dosage: 100 MG, UNKNOWN
     Route: 048

REACTIONS (5)
  - Suicide attempt [Unknown]
  - Sopor [Unknown]
  - Toxicity to various agents [Unknown]
  - Drug use disorder [Unknown]
  - Intentional overdose [Unknown]

NARRATIVE: CASE EVENT DATE: 20170202
